FAERS Safety Report 9311374 (Version 1)
Quarter: 2013Q2

REPORT INFORMATION
  Report Type: Spontaneous
  Country: AT (occurrence: AT)
  Receive Date: 20130528
  Receipt Date: 20130528
  Transmission Date: 20140414
  Serious: Yes (Other)
  Sender: FDA-Public Use
  Company Number: AT-JNJFOC-20130510715

PATIENT
  Age: 29 Year
  Sex: Male

DRUGS (4)
  1. STELARA [Suspect]
     Indication: PSORIASIS
     Route: 058
     Dates: start: 201003
  2. STELARA [Suspect]
     Indication: PSORIASIS
     Route: 058
     Dates: start: 201303
  3. STELARA [Suspect]
     Indication: PSORIASIS
     Route: 058
  4. STELARA [Suspect]
     Indication: PSORIASIS
     Route: 058
     Dates: start: 2012

REACTIONS (5)
  - Osteopenia [Recovered/Resolved]
  - Hypokalaemia [Recovered/Resolved]
  - Back pain [Unknown]
  - Vitamin D deficiency [Recovered/Resolved]
  - Psoriasis [Recovered/Resolved]
